FAERS Safety Report 5691428-0 (Version None)
Quarter: 2008Q2

REPORT INFORMATION
  Report Type: 
  Country: None (occurrence: None)
  Receive Date: 20080401
  Receipt Date: 20080401
  Transmission Date: 20081010
  Serious: Yes (Hospitalization)
  Sender: FDA-Public Use
  Company Number: None

PATIENT
  Age: 60 Year
  Sex: Male
  Weight: 65.318 kg

DRUGS (10)
  1. OXALIPLATIN [Suspect]
     Indication: RECTAL CANCER
     Dosage: IV EVERY 3 WEEKS
     Route: 042
     Dates: start: 20070724, end: 20071127
  2. BEVACIZUMAB  7.5MG/KG [Suspect]
     Indication: RECTAL CANCER
     Dosage: IV EVERY 3 WEEKS
     Route: 042
     Dates: start: 20070724, end: 20071127
  3. CETUXIMAB 250MG/M2 IV WEEKLY [Suspect]
     Indication: RECTAL CANCER
     Dosage: IV EVERY 3 WEEKS
     Route: 042
     Dates: start: 20070724, end: 20071127
  4. XELODA [Suspect]
     Indication: RECTAL CANCER
     Dosage: IV EVERY 3 WEEKS
     Route: 042
     Dates: start: 20070724, end: 20071127
  5. PEPCID [Concomitant]
  6. HYDROCHLOROTHIAZIDE [Concomitant]
  7. PHENYTOIN [Concomitant]
  8. DECADRON [Concomitant]
  9. MAG OXIDE [Concomitant]
  10. ROBAXIN [Concomitant]

REACTIONS (5)
  - ASTHENIA [None]
  - DISEASE PROGRESSION [None]
  - MYOCLONUS [None]
  - NUCLEAR MAGNETIC RESONANCE IMAGING BRAIN ABNORMAL [None]
  - UNRESPONSIVE TO STIMULI [None]
